FAERS Safety Report 6320077-6 (Version None)
Quarter: 2009Q3

REPORT INFORMATION
  Report Type: 
  Country: None (occurrence: None)
  Receive Date: 20090822
  Receipt Date: 20081016
  Transmission Date: 20100115
  Serious: No
  Sender: FDA-Public Use
  Company Number: US-ABBOTT-08P-163-0482224-00

PATIENT
  Sex: Male

DRUGS (4)
  1. NIASPAN [Suspect]
     Indication: BLOOD CHOLESTEROL INCREASED
     Dosage: 2 TABLETS X 500MG DAILY
     Route: 048
     Dates: start: 20081001
  2. NIASPAN [Suspect]
     Route: 048
     Dates: start: 20080701, end: 20080930
  3. BENICAR [Concomitant]
     Indication: BLOOD PRESSURE
     Dosage: 40/12.5MG DAILY
     Route: 048
  4. SIMVASTATIN [Concomitant]
     Indication: DRUG USE FOR UNKNOWN INDICATION
     Route: 048

REACTIONS (1)
  - PRURITUS [None]
